FAERS Safety Report 14214087 (Version 1)
Quarter: 2017Q4

REPORT INFORMATION
  Report Type: Spontaneous
  Country: US (occurrence: US)
  Receive Date: 20171122
  Receipt Date: 20171122
  Transmission Date: 20180321
  Serious: Yes (Hospitalization)
  Sender: FDA-Public Use
  Company Number: US-B.I. PHARMACEUTICALS,INC./RIDGEFIELD-2017-BI-061660

PATIENT
  Age: 73 Year
  Sex: Male

DRUGS (1)
  1. JARDIANCE [Suspect]
     Active Substance: EMPAGLIFLOZIN
     Indication: TYPE 2 DIABETES MELLITUS
     Dosage: THERAPY START DATE: 02-OCT-2017
     Route: 048
     Dates: end: 20171010

REACTIONS (4)
  - Prostatitis [Unknown]
  - Sepsis [Unknown]
  - Urinary tract infection [Unknown]
  - Renal failure [Unknown]

NARRATIVE: CASE EVENT DATE: 201710
